FAERS Safety Report 5654522-6 (Version None)
Quarter: 2008Q1

REPORT INFORMATION
  Report Type: 
  Country: None (occurrence: None)
  Receive Date: 20080307
  Receipt Date: 20080222
  Transmission Date: 20080703
  Serious: Yes (Hospitalization)
  Sender: FDA-Public Use
  Company Number: FR-BAYER-200813802GPV

PATIENT
  Age: 24 Year
  Sex: Male

DRUGS (10)
  1. IZILOX [Suspect]
     Indication: MENINGITIS
     Dosage: TOTAL DAILY DOSE: 400 MG  UNIT DOSE: 400 MG
     Route: 048
     Dates: start: 20071026, end: 20071110
  2. AMOXICILLIN [Suspect]
     Indication: MENINGITIS
     Dosage: UNIT DOSE: 3 G
     Route: 042
     Dates: start: 20071026, end: 20071110
  3. ACETAMINOPHEN [Concomitant]
     Indication: DRUG USE FOR UNKNOWN INDICATION
     Route: 065
  4. PRIMPERAN INJ [Concomitant]
     Indication: ANTIEMETIC SUPPORTIVE CARE
     Route: 042
  5. VANCOMYCIN [Concomitant]
     Indication: MENINGITIS
     Route: 065
     Dates: start: 20071022, end: 20071026
  6. CLAFORAN [Concomitant]
     Indication: MENINGITIS
     Route: 065
     Dates: start: 20071022, end: 20071026
  7. FOSFOCIN [Concomitant]
     Indication: MENINGITIS
     Route: 065
     Dates: start: 20071022, end: 20071026
  8. RIVOTRIL [Concomitant]
     Indication: MYOCLONUS
     Route: 065
     Dates: start: 20071117
  9. DEPAKENE [Concomitant]
     Indication: MYOCLONUS
     Route: 065
     Dates: start: 20071117
  10. KEPPRA [Concomitant]
     Indication: MYOCLONUS
     Route: 065
     Dates: start: 20071119

REACTIONS (5)
  - HAEMATURIA [None]
  - LEUKOCYTURIA [None]
  - PROTEINURIA [None]
  - RENAL FAILURE ACUTE [None]
  - RENAL TUBULAR DISORDER [None]
